FAERS Safety Report 11216612 (Version 1)
Quarter: 2015Q2

REPORT INFORMATION
  Report Type: Spontaneous
  Country: US (occurrence: US)
  Receive Date: 20150624
  Receipt Date: 20150624
  Transmission Date: 20150821
  Serious: No
  Sender: FDA-Public Use
  Company Number: US-MYLANLABS-2014S1012217

PATIENT
  Sex: Female

DRUGS (3)
  1. OMEPRAZOLE DELAYED-RELEASE [Suspect]
     Active Substance: OMEPRAZOLE
     Dosage: 40 MG,QD
     Route: 048
     Dates: start: 201405, end: 201405
  2. OMEPRAZOLE DELAYED-RELEASE [Suspect]
     Active Substance: OMEPRAZOLE
     Indication: GASTROOESOPHAGEAL REFLUX DISEASE
  3. OMEPRAZOLE DELAYED-RELEASE [Suspect]
     Active Substance: OMEPRAZOLE
     Dosage: 40 MG,BID
     Route: 048
     Dates: start: 201405

REACTIONS (3)
  - Wheezing [Not Recovered/Not Resolved]
  - Drug ineffective [Not Recovered/Not Resolved]
  - Dyspnoea [Not Recovered/Not Resolved]

NARRATIVE: CASE EVENT DATE: 201405
